FAERS Safety Report 10062481 (Version 1)
Quarter: 2014Q1

REPORT INFORMATION
  Report Type: Spontaneous
  Country: US (occurrence: None)
  Receive Date: 20140313
  Receipt Date: 20140313
  Transmission Date: 20141002
  Serious: Yes (Other)
  Sender: FDA-Public Use
  Company Number: 1000052420

PATIENT
  Sex: Male
  Weight: 97 kg

DRUGS (3)
  1. DALIRESP (ROFLUMILAST) (500 MICROGRAM, TABLETS) [Suspect]
     Indication: CHRONIC OBSTRUCTIVE PULMONARY DISEASE
     Route: 048
     Dates: start: 2013
  2. METFORMIN (METFORMIN) (METFORMIN) [Concomitant]
  3. JANUVIA (SITAGLIPTIN PHOSPHATE) (SITAGLIPTIN) [Concomitant]

REACTIONS (1)
  - Weight decreased [None]
